FAERS Safety Report 5793850-0 (Version None)
Quarter: 2008Q2

REPORT INFORMATION
  Report Type: 
  Country: None (occurrence: None)
  Receive Date: 20080627
  Receipt Date: 20080624
  Transmission Date: 20081010
  Serious: Yes (Death)
  Sender: FDA-Public Use
  Company Number: GB-BOEHRINGER INGELHEIM GMBH, GERMANY-2008-BP-08875BP

PATIENT
  Age: 3 Month
  Sex: Male

DRUGS (4)
  1. VIRAMUNE [Suspect]
     Indication: HIV INFECTION
     Route: 064
  2. COMBIVIR [Suspect]
     Indication: HIV INFECTION
     Route: 064
  3. KALETRA [Suspect]
     Indication: HIV INFECTION
     Route: 064
  4. ZIDOVUDINE [Suspect]
     Indication: HIV INFECTION
     Route: 058

REACTIONS (2)
  - DEATH NEONATAL [None]
  - MITOCHONDRIAL TOXICITY [None]
